FAERS Safety Report 16858320 (Version 9)
Quarter: 2022Q3

REPORT INFORMATION
  Report Type: Spontaneous
  Country: SK (occurrence: SK)
  Receive Date: 20190926
  Receipt Date: 20220908
  Transmission Date: 20221027
  Serious: Yes (Life-Threatening, Hospitalization, Disabling, Other)
  Sender: FDA-Public Use
  Company Number: SK-BEH-2019106699

PATIENT
  Sex: Female

DRUGS (68)
  1. HUMAN IMMUNOGLOBULIN G [Suspect]
     Active Substance: HUMAN IMMUNOGLOBULIN G
     Indication: Foetal exposure timing unspecified
     Dosage: UNK
     Route: 064
     Dates: start: 20180423, end: 20180425
  2. HUMAN IMMUNOGLOBULIN G [Suspect]
     Active Substance: HUMAN IMMUNOGLOBULIN G
     Dosage: UNK
     Route: 064
  3. HUMAN IMMUNOGLOBULIN G [Suspect]
     Active Substance: HUMAN IMMUNOGLOBULIN G
     Dosage: UNK
     Route: 064
  4. HYDROCORTISONE [Suspect]
     Active Substance: HYDROCORTISONE
     Indication: Foetal exposure timing unspecified
     Dosage: UNK
     Route: 064
     Dates: start: 20180303, end: 20180309
  5. HYDROCORTISONE [Suspect]
     Active Substance: HYDROCORTISONE
     Dosage: UNK
     Route: 065
     Dates: start: 20180303, end: 20180309
  6. ALBUMIN HUMAN [Suspect]
     Active Substance: ALBUMIN HUMAN
     Indication: Foetal exposure timing unspecified
     Dosage: UNK
     Route: 064
     Dates: start: 20180327, end: 20180329
  7. ALBUMIN HUMAN [Suspect]
     Active Substance: ALBUMIN HUMAN
     Dosage: UNK
     Route: 065
     Dates: start: 20180327, end: 20180329
  8. DEXAMETHASONE [Suspect]
     Active Substance: DEXAMETHASONE
     Indication: Foetal exposure timing unspecified
     Dosage: UNK
     Route: 064
     Dates: start: 20180309, end: 20190504
  9. DEXAMETHASONE [Suspect]
     Active Substance: DEXAMETHASONE
     Dosage: UNK
     Route: 064
     Dates: start: 20180228, end: 20180302
  10. DEXAMETHASONE [Suspect]
     Active Substance: DEXAMETHASONE
     Dosage: UNK
     Route: 065
     Dates: start: 20180228, end: 20180302
  11. DEXAMETHASONE [Suspect]
     Active Substance: DEXAMETHASONE
     Dosage: UNK
     Route: 065
     Dates: start: 20180309, end: 20190504
  12. AMINOMETHYLBENZOIC ACID [Suspect]
     Active Substance: AMINOMETHYLBENZOIC ACID
     Indication: Foetal exposure timing unspecified
     Dosage: UNK
     Route: 064
     Dates: start: 20180227, end: 20180311
  13. AMINOMETHYLBENZOIC ACID [Suspect]
     Active Substance: AMINOMETHYLBENZOIC ACID
     Dosage: UNK
     Route: 065
     Dates: start: 20180227, end: 20180311
  14. CALCIUM CARBONATE [Suspect]
     Active Substance: CALCIUM CARBONATE
     Indication: Foetal exposure timing unspecified
     Dosage: UNK
     Route: 064
     Dates: start: 20180223
  15. CALCIUM CARBONATE [Suspect]
     Active Substance: CALCIUM CARBONATE
     Dosage: UNK
     Route: 065
     Dates: start: 20180223
  16. PRIVIGEN [Suspect]
     Active Substance: HUMAN IMMUNOGLOBULIN G
     Indication: Product used for unknown indication
     Dosage: UNK
     Route: 064
  17. PRIVIGEN [Suspect]
     Active Substance: HUMAN IMMUNOGLOBULIN G
     Dosage: UNK
     Route: 064
  18. PRIVIGEN [Suspect]
     Active Substance: HUMAN IMMUNOGLOBULIN G
     Dosage: UNK
     Route: 065
     Dates: start: 20180423, end: 20180425
  19. FLEBOGAMMA [Suspect]
     Active Substance: HUMAN IMMUNOGLOBULIN G
     Indication: Product used for unknown indication
     Dosage: UNK
     Route: 065
     Dates: start: 20180423, end: 20180425
  20. VITAMIN K [Suspect]
     Active Substance: PHYTONADIONE
     Indication: Foetal exposure timing unspecified
     Dosage: UNK
     Route: 064
     Dates: start: 20180227, end: 20180309
  21. BISULEPIN [Suspect]
     Active Substance: BISULEPIN
     Indication: Foetal exposure timing unspecified
     Dosage: UNK
     Route: 064
     Dates: start: 20180327, end: 20180327
  22. BISULEPIN [Suspect]
     Active Substance: BISULEPIN
     Dosage: UNK
     Route: 065
     Dates: start: 20180327, end: 20180327
  23. NADROPARIN [Suspect]
     Active Substance: NADROPARIN
     Indication: Foetal exposure timing unspecified
     Dosage: UNK
     Route: 064
     Dates: start: 20180222, end: 20180226
  24. NADROPARIN [Suspect]
     Active Substance: NADROPARIN
     Dosage: UNK
     Route: 065
     Dates: start: 20180222, end: 20180226
  25. ETHAMSYLATE [Suspect]
     Active Substance: ETHAMSYLATE
     Indication: Foetal exposure timing unspecified
     Dosage: UNK
     Route: 064
     Dates: start: 20180222, end: 20180413
  26. ETHAMSYLATE [Suspect]
     Active Substance: ETHAMSYLATE
     Dosage: UNK
     Route: 065
     Dates: start: 20180222, end: 20180413
  27. METOPROLOL TARTRATE [Suspect]
     Active Substance: METOPROLOL TARTRATE
     Indication: Foetal exposure timing unspecified
     Dosage: UNK
     Route: 064
     Dates: start: 20180511
  28. METOPROLOL TARTRATE [Suspect]
     Active Substance: METOPROLOL TARTRATE
     Dosage: UNK
     Route: 065
     Dates: start: 20180511
  29. POTASSIUM CHLORIDE [Suspect]
     Active Substance: POTASSIUM CHLORIDE
     Indication: Foetal exposure timing unspecified
     Dosage: UNK
     Route: 064
     Dates: start: 20180314
  30. POTASSIUM CHLORIDE [Suspect]
     Active Substance: POTASSIUM CHLORIDE
     Dosage: UNK
     Route: 065
     Dates: start: 20180314
  31. PREDNISONE [Suspect]
     Active Substance: PREDNISONE
     Indication: Foetal exposure timing unspecified
     Dosage: UNK
     Route: 064
     Dates: start: 20180222, end: 20180227
  32. PREDNISONE [Suspect]
     Active Substance: PREDNISONE
     Dosage: UNK
     Route: 064
     Dates: start: 20180509
  33. PREDNISONE [Suspect]
     Active Substance: PREDNISONE
     Dosage: UNK
     Route: 065
     Dates: start: 20180222, end: 20180227
  34. PREDNISONE [Suspect]
     Active Substance: PREDNISONE
     Dosage: UNK
     Route: 065
     Dates: start: 20180509
  35. VITAMIN B COMPLEX [Suspect]
     Active Substance: CYANOCOBALAMIN\DEXPANTHENOL\NIACINAMIDE\PYRIDOXINE HYDROCHLORIDE\RIBOFLAVIN 5^-PHOSPHATE SODIUM\THIA
     Indication: Foetal exposure timing unspecified
     Dosage: UNK
     Route: 064
     Dates: start: 20180326
  36. ACETAMINOPHEN [Suspect]
     Active Substance: ACETAMINOPHEN
     Indication: Foetal exposure timing unspecified
     Dosage: UNK
     Route: 064
     Dates: start: 20180222, end: 20180403
  37. ACETAMINOPHEN [Suspect]
     Active Substance: ACETAMINOPHEN
     Dosage: UNK
     Route: 065
     Dates: start: 20180222, end: 20180403
  38. FOLIC ACID [Suspect]
     Active Substance: FOLIC ACID
     Indication: Foetal exposure timing unspecified
     Dosage: UNK
     Route: 064
     Dates: start: 20180222
  39. FOLIC ACID [Suspect]
     Active Substance: FOLIC ACID
     Dosage: UNK
     Route: 065
     Dates: start: 20180222
  40. METHYLPREDNISOLONE SODIUM SUCCINATE [Suspect]
     Active Substance: METHYLPREDNISOLONE SODIUM SUCCINATE
     Indication: Foetal exposure timing unspecified
     Dosage: UNK
     Route: 064
     Dates: start: 20180221, end: 20180223
  41. METHYLPREDNISOLONE SODIUM SUCCINATE [Suspect]
     Active Substance: METHYLPREDNISOLONE SODIUM SUCCINATE
     Dosage: UNK
     Route: 064
     Dates: start: 20180505, end: 20180509
  42. METHYLPREDNISOLONE SODIUM SUCCINATE [Suspect]
     Active Substance: METHYLPREDNISOLONE SODIUM SUCCINATE
     Dosage: UNK
     Route: 065
     Dates: start: 20180221, end: 20180223
  43. METHYLPREDNISOLONE SODIUM SUCCINATE [Suspect]
     Active Substance: METHYLPREDNISOLONE SODIUM SUCCINATE
     Dosage: UNK
     Route: 065
     Dates: start: 20180505, end: 20180509
  44. PENICILLIN G [Suspect]
     Active Substance: PENICILLIN G
     Indication: Foetal exposure timing unspecified
     Dosage: UNK
     Route: 064
     Dates: start: 20180224, end: 20180308
  45. PENICILLIN G [Suspect]
     Active Substance: PENICILLIN G
     Dosage: UNK
     Route: 065
     Dates: start: 20180224, end: 20180308
  46. ETHAMSYLATE [Suspect]
     Active Substance: ETHAMSYLATE
     Indication: Foetal exposure timing unspecified
     Dosage: UNK
     Route: 064
     Dates: start: 20180222, end: 20180413
  47. CEFIXIME [Suspect]
     Active Substance: CEFIXIME
     Indication: Foetal exposure timing unspecified
     Dosage: UNK
     Route: 064
     Dates: start: 20180501, end: 20180514
  48. VITAMIN D [Suspect]
     Active Substance: VITAMIN D NOS
     Indication: Foetal exposure timing unspecified
     Dosage: UNK
     Route: 064
     Dates: start: 20180222
  49. VITAMIN D [Suspect]
     Active Substance: VITAMIN D NOS
     Dosage: UNK
     Route: 065
     Dates: start: 20180222
  50. ORNIDAZOLE [Suspect]
     Active Substance: ORNIDAZOLE
     Indication: Foetal exposure timing unspecified
     Dosage: UNK
     Route: 064
     Dates: start: 20180501, end: 20180510
  51. ORNIDAZOLE [Suspect]
     Active Substance: ORNIDAZOLE
     Dosage: UNK
     Route: 065
     Dates: start: 20180501, end: 20180510
  52. OMEPRAZOLE [Suspect]
     Active Substance: OMEPRAZOLE
     Indication: Foetal exposure timing unspecified
     Dosage: UNK
     Route: 064
     Dates: start: 20180222
  53. OMEPRAZOLE [Suspect]
     Active Substance: OMEPRAZOLE
     Dosage: UNK
     Route: 065
     Dates: start: 20180222
  54. BISOPROLOL FUMARATE [Suspect]
     Active Substance: BISOPROLOL FUMARATE
     Indication: Foetal exposure timing unspecified
     Dosage: UNK
     Route: 064
     Dates: start: 20180223, end: 20180327
  55. BISOPROLOL FUMARATE [Suspect]
     Active Substance: BISOPROLOL FUMARATE
     Dosage: UNK
     Route: 065
     Dates: start: 20180223, end: 20180327
  56. FLUCONAZOLE [Suspect]
     Active Substance: FLUCONAZOLE
     Indication: Foetal exposure timing unspecified
     Dosage: UNK
     Route: 064
     Dates: start: 20180227, end: 20180320
  57. FLUCONAZOLE [Suspect]
     Active Substance: FLUCONAZOLE
     Dosage: UNK
     Route: 065
     Dates: start: 20180227, end: 20180320
  58. MAGNESIUM LACTATE [Suspect]
     Active Substance: MAGNESIUM LACTATE
     Indication: Product used for unknown indication
     Dosage: UNK
     Route: 064
     Dates: start: 20180321, end: 20180405
  59. MAGNESIUM LACTATE [Suspect]
     Active Substance: MAGNESIUM LACTATE
     Dosage: UNK
     Route: 065
     Dates: start: 20180321, end: 20180405
  60. CEFOTAXIME [Suspect]
     Active Substance: CEFOTAXIME SODIUM
     Indication: Foetal exposure timing unspecified
     Dosage: UNK
     Route: 064
     Dates: start: 20180319, end: 20180329
  61. CEFOTAXIME [Suspect]
     Active Substance: CEFOTAXIME SODIUM
     Dosage: UNK
     Route: 064
     Dates: start: 20180412, end: 20180427
  62. CEFOTAXIME [Suspect]
     Active Substance: CEFOTAXIME SODIUM
     Dosage: UNK
     Route: 065
     Dates: start: 20180501, end: 20180514
  63. CEFOTAXIME [Suspect]
     Active Substance: CEFOTAXIME SODIUM
     Dosage: UNK
     Route: 065
     Dates: start: 20180319, end: 20180329
  64. CEFOTAXIME [Suspect]
     Active Substance: CEFOTAXIME SODIUM
     Dosage: UNK
     Route: 065
     Dates: start: 20180412, end: 20180427
  65. CEFAZOLIN SODIUM [Suspect]
     Active Substance: CEFAZOLIN SODIUM
     Indication: Foetal exposure timing unspecified
     Dosage: UNK
     Route: 064
     Dates: start: 20180501, end: 20180511
  66. CEFAZOLIN SODIUM [Suspect]
     Active Substance: CEFAZOLIN SODIUM
     Dosage: UNK
     Route: 065
     Dates: start: 20180501, end: 20180511
  67. HYDROXYCHLOROQUINE [Suspect]
     Active Substance: HYDROXYCHLOROQUINE
     Indication: Foetal exposure timing unspecified
     Dosage: UNK
     Route: 064
     Dates: start: 20180222
  68. HYDROXYCHLOROQUINE [Suspect]
     Active Substance: HYDROXYCHLOROQUINE
     Dosage: UNK
     Route: 065
     Dates: start: 20180222

REACTIONS (4)
  - Foetal growth restriction [Recovered/Resolved]
  - Oligohydramnios [Recovered/Resolved]
  - Premature baby [Recovered/Resolved]
  - Foetal exposure during pregnancy [Unknown]

NARRATIVE: CASE EVENT DATE: 20180404
